FAERS Safety Report 9752494 (Version 1)
Quarter: 2013Q4

REPORT INFORMATION
  Report Type: Spontaneous
  Country: GB (occurrence: GB)
  Receive Date: 20131213
  Receipt Date: 20131213
  Transmission Date: 20140711
  Serious: Yes (Hospitalization, Other)
  Sender: FDA-Public Use
  Company Number: GB-ELI_LILLY_AND_COMPANY-GB201312001161

PATIENT
  Age: 62 Year
  Sex: Female

DRUGS (6)
  1. DULOXETINE HYDROCHLORIDE [Suspect]
     Indication: PRODUCT USED FOR UNKNOWN INDICATION
     Dosage: 1 DF, UNKNOWN
     Route: 065
     Dates: end: 2013
  2. LYRICA [Concomitant]
     Indication: NEURALGIA
     Dosage: 100 MG, BID
     Route: 065
     Dates: start: 2009
  3. LIDOCAINE [Concomitant]
     Indication: PRODUCT USED FOR UNKNOWN INDICATION
     Dosage: 1 DF, UNKNOWN
     Route: 062
  4. PERINDOPRIL [Concomitant]
     Indication: PRODUCT USED FOR UNKNOWN INDICATION
     Dosage: 1 DF, UNKNOWN
     Route: 065
  5. FUROSEMIDE [Concomitant]
     Indication: PRODUCT USED FOR UNKNOWN INDICATION
     Dosage: 1 DF, UNKNOWN
     Route: 065
  6. FUROSEMIDE [Concomitant]
     Dosage: 40 MG, UNKNOWN
     Route: 065

REACTIONS (5)
  - Cardiac failure congestive [Unknown]
  - Cardiomyopathy [Unknown]
  - Nerve injury [Unknown]
  - Skin sensitisation [Unknown]
  - Depression [Unknown]
